FAERS Safety Report 11520519 (Version 1)
Quarter: 2015Q3

REPORT INFORMATION
  Report Type: Spontaneous
  Country: US (occurrence: None)
  Receive Date: 20150917
  Receipt Date: 20150917
  Transmission Date: 20151125
  Serious: Yes (Disabling)
  Sender: FDA-Public Use
  Company Number: None

PATIENT
  Sex: Male
  Weight: 86.18 kg

DRUGS (22)
  1. GABAPENTIN. [Suspect]
     Active Substance: GABAPENTIN
     Indication: NERVE COMPRESSION
     Dosage: 1 PILL AM 1 PILL PM
     Route: 048
  2. CHLOROTHALIDONE [Concomitant]
  3. FINASTERIDE [Concomitant]
  4. TAMSULOSIN [Concomitant]
  5. FISH OIL [Concomitant]
  6. LISINOPRIL [Concomitant]
  7. CARVEDILOL [Concomitant]
  8. WARFARIN [Concomitant]
  9. PREGABALIN [Concomitant]
  10. NAPROXEN SODIUM [Concomitant]
  11. LEVOTHYROXINE. [Concomitant]
     Active Substance: LEVOTHYROXINE
  12. LORATADINE [Concomitant]
  13. MILK THISTLE [Concomitant]
  14. SAW PALMETTO [Concomitant]
  15. FENTANYL [Concomitant]
  16. OMEPRAZOLE [Concomitant]
  17. OXYCODONE [Concomitant]
  18. MOUTH KOTE ARTIFICAL SALIVA SPRAY [Concomitant]
  19. PROCTOFOAM HYDROCORTISONE [Concomitant]
  20. ATORVASTATIN [Concomitant]
  21. FLUTICASONE PROPIONATE [Concomitant]
  22. CYANOCOBALAMIN [Concomitant]

REACTIONS (4)
  - Vision blurred [None]
  - Muscle spasms [None]
  - Dyskinesia [None]
  - Abasia [None]

NARRATIVE: CASE EVENT DATE: 201508
